FAERS Safety Report 8596906-2 (Version None)
Quarter: 2012Q3

REPORT INFORMATION
  Report Type: 
  Country: None (occurrence: None)
  Receive Date: 20120815
  Receipt Date: 20120809
  Transmission Date: 20120928
  Serious: Yes (Other)
  Sender: FDA-Public Use
  Company Number: GXKR2012DE002570

PATIENT

DRUGS (4)
  1. DICLOFENAC [Concomitant]
     Dosage: 75 MG, BID
  2. METHOTREXATE [Suspect]
     Dosage: 15 MG, QW
     Dates: start: 19980101
  3. PREDNISOLONE [Concomitant]
     Dosage: 10 MG/DAY
  4. ENBREL [Suspect]
     Indication: POLYARTHRITIS
     Dosage: 25 MG, QW2
     Route: 058
     Dates: start: 20010305

REACTIONS (1)
  - CHRONIC MYELOID LEUKAEMIA [None]
